FAERS Safety Report 13451475 (Version 1)
Quarter: 2017Q2

REPORT INFORMATION
  Report Type: Spontaneous
  Country: US (occurrence: US)
  Receive Date: 20170418
  Receipt Date: 20170418
  Transmission Date: 20170830
  Serious: Yes (Other)
  Sender: FDA-Public Use
  Company Number: US-LUPIN (EUROPE) LIMITED-2016-04889

PATIENT
  Age: 23 Year
  Sex: Female

DRUGS (1)
  1. MY WAY [Suspect]
     Active Substance: LEVONORGESTREL
     Indication: ORAL CONTRACEPTION
     Dosage: 1.5 MG,UNK,UNKNOWN
     Route: 048
     Dates: start: 20161022

REACTIONS (1)
  - Fungal infection [Not Recovered/Not Resolved]

NARRATIVE: CASE EVENT DATE: 20161029
